FAERS Safety Report 19300224 (Version 1)
Quarter: 2021Q2

REPORT INFORMATION
  Report Type: Spontaneous
  Country: US (occurrence: US)
  Receive Date: 20210524
  Receipt Date: 20210524
  Transmission Date: 20210717
  Serious: Yes (Other)
  Sender: FDA-Public Use
  Company Number: US-ATHENEX PHARMACEUTICAL SOLUTION-2111901

PATIENT

DRUGS (12)
  1. ASPIRIN. [Concomitant]
     Active Substance: ASPIRIN
  2. CALCIUM CHLORIDE. [Concomitant]
     Active Substance: CALCIUM CHLORIDE
  3. SODIUM BICARBONATE. [Concomitant]
     Active Substance: SODIUM BICARBONATE
  4. EPINEPHRINE. [Concomitant]
     Active Substance: EPINEPHRINE
  5. ALBUMIN (HUMAN) [Concomitant]
     Active Substance: ALBUMIN HUMAN
  6. MORPHINE SULFATE. [Concomitant]
     Active Substance: MORPHINE SULFATE
  7. DEXMEDETOMIDINE. [Concomitant]
     Active Substance: DEXMEDETOMIDINE
  8. NOREPINEPHRINE INJECTION IN 0.9%SOIUM CHLORIDE [Suspect]
     Active Substance: NOREPINEPHRINE
     Indication: ACUTE CORONARY SYNDROME
     Route: 041
  9. PROPOFOL. [Concomitant]
     Active Substance: PROPOFOL
  10. DOPAMINE [Concomitant]
     Active Substance: DOPAMINE HYDROCHLORIDE
  11. PANTOPRAZOLE SODIUM. [Concomitant]
     Active Substance: PANTOPRAZOLE SODIUM
  12. DOBUTAMINE [Concomitant]
     Active Substance: DOBUTAMINE HYDROCHLORIDE

REACTIONS (1)
  - Drug ineffective [Unknown]
